FAERS Safety Report 24121929 (Version 2)
Quarter: 2024Q3

REPORT INFORMATION
  Report Type: Spontaneous
  Country: US (occurrence: US)
  Receive Date: 20240722
  Receipt Date: 20240903
  Transmission Date: 20241016
  Serious: Yes (Death)
  Sender: TEVA
  Company Number: US-TEVA-VS-3220644

PATIENT
  Sex: Male

DRUGS (1)
  1. HYDRALAZINE [Suspect]
     Active Substance: HYDRALAZINE HYDROCHLORIDE
     Indication: Cutaneous vasculitis
     Route: 065

REACTIONS (2)
  - Cryptococcosis [Fatal]
  - Angiopathy [Fatal]
